FAERS Safety Report 7807119-3 (Version None)
Quarter: 2011Q4

REPORT INFORMATION
  Report Type: 
  Country: None (occurrence: None)
  Receive Date: 20111011
  Receipt Date: 20111003
  Transmission Date: 20120403
  Serious: Yes (Other)
  Sender: FDA-Public Use
  Company Number: US-TEVA-303943USA

PATIENT
  Sex: Female

DRUGS (1)
  1. CLARAVIS [Suspect]
     Dosage: 60 MILLIGRAM;
     Route: 048
     Dates: start: 20110618

REACTIONS (2)
  - UNINTENDED PREGNANCY [None]
  - ABORTION SPONTANEOUS [None]
